FAERS Safety Report 9256481 (Version 1)
Quarter: 2013Q2

REPORT INFORMATION
  Report Type: Spontaneous
  Country: DE (occurrence: DE)
  Receive Date: 20130426
  Receipt Date: 20130426
  Transmission Date: 20140414
  Serious: Yes (Hospitalization)
  Sender: FDA-Public Use
  Company Number: DE-BIOGENIDEC-2013BI037063

PATIENT
  Age: 44 Year
  Sex: Male
  Weight: 83 kg

DRUGS (3)
  1. AVONEX [Suspect]
     Indication: MULTIPLE SCLEROSIS
     Route: 030
     Dates: start: 20090226, end: 20120908
  2. PARACETAMOL [Concomitant]
     Indication: INFLUENZA LIKE ILLNESS
     Dates: end: 201209
  3. IBUPROFEN [Concomitant]
     Indication: PRODUCT USED FOR UNKNOWN INDICATION

REACTIONS (1)
  - Furuncle [Recovered/Resolved]
